FAERS Safety Report 17802376 (Version 1)
Quarter: 2020Q2

REPORT INFORMATION
  Report Type: Spontaneous
  Country: US (occurrence: US)
  Receive Date: 20200518
  Receipt Date: 20200518
  Transmission Date: 20200714
  Serious: Yes (Other)
  Sender: FDA-Public Use
  Company Number: None

PATIENT
  Age: 53 Year
  Sex: Female

DRUGS (2)
  1. VIVELLE [Suspect]
     Active Substance: ESTRADIOL
  2. ESTRADIOL PATCH 0.05 [Suspect]
     Active Substance: ESTRADIOL

REACTIONS (2)
  - Urticaria [None]
  - Erythema [None]
